FAERS Safety Report 5733110-7 (Version None)
Quarter: 2008Q2

REPORT INFORMATION
  Report Type: 
  Country: None (occurrence: None)
  Receive Date: 20080509
  Receipt Date: 20080430
  Transmission Date: 20081010
  Serious: Yes (Hospitalization, Other)
  Sender: FDA-Public Use
  Company Number: US-ROCHE-562023

PATIENT
  Age: 52 Year
  Sex: Male

DRUGS (2)
  1. PEGASYS [Suspect]
     Dosage: FORMULATION: INJECTION
     Route: 065
     Dates: start: 20070801, end: 20080201
  2. COPEGUS [Suspect]
     Route: 065
     Dates: start: 20070801, end: 20080201

REACTIONS (4)
  - BLOOD TEST ABNORMAL [None]
  - DRUG INEFFECTIVE [None]
  - GALLBLADDER OPERATION [None]
  - HEPATIC FAILURE [None]
